FAERS Safety Report 7058475-8 (Version None)
Quarter: 2010Q4

REPORT INFORMATION
  Report Type: 
  Country: None (occurrence: None)
  Receive Date: 20101022
  Receipt Date: 20101020
  Transmission Date: 20110411
  Serious: Yes (Other)
  Sender: FDA-Public Use
  Company Number: AU-WYE-G06836210

PATIENT
  Sex: Female
  Weight: 100 kg

DRUGS (1)
  1. PRISTIQ [Suspect]
     Indication: DEPRESSION
     Dosage: 50MG
     Route: 048
     Dates: start: 20100710, end: 20100101

REACTIONS (3)
  - DIZZINESS [None]
  - FEAR [None]
  - SUICIDAL IDEATION [None]
